FAERS Safety Report 10982442 (Version 2)
Quarter: 2015Q4

REPORT INFORMATION
  Report Type: Spontaneous
  Country: US (occurrence: US)
  Receive Date: 20150403
  Receipt Date: 20151103
  Transmission Date: 20160304
  Serious: No
  Sender: FDA-Public Use
  Company Number: US-PFIZER INC-2015114306

PATIENT
  Age: 93 Year
  Sex: Female

DRUGS (20)
  1. LOPRESSOR [Suspect]
     Active Substance: METOPROLOL TARTRATE
     Dosage: UNK
  2. CODEINE [Suspect]
     Active Substance: CODEINE
     Dosage: UNK
  3. NOVOCAINE [Suspect]
     Active Substance: PROCAINE
     Dosage: UNK
  4. ZESTRIL [Suspect]
     Active Substance: LISINOPRIL
     Dosage: UNK
  5. LEVBID [Suspect]
     Active Substance: HYOSCYAMINE SULFATE
     Dosage: UNK
  6. VIOXX [Suspect]
     Active Substance: ROFECOXIB
     Dosage: UNK
  7. DEMEROL [Suspect]
     Active Substance: MEPERIDINE HYDROCHLORIDE
     Dosage: UNK
  8. REGLAN [Suspect]
     Active Substance: METOCLOPRAMIDE HYDROCHLORIDE
     Dosage: UNK
  9. DARVOCET [Suspect]
     Active Substance: ACETAMINOPHEN\PROPOXYPHENE HYDROCHLORIDE
     Dosage: UNK
  10. MEDROL [Suspect]
     Active Substance: METHYLPREDNISOLONE
     Dosage: UNK
  11. ALDOMET [Suspect]
     Active Substance: METHYLDOPA
     Dosage: UNK
  12. IODINE [Suspect]
     Active Substance: IODINE
     Dosage: UNK
  13. AVELOX [Suspect]
     Active Substance: MOXIFLOXACIN HYDROCHLORIDE
     Dosage: UNK
  14. TRANDATE [Suspect]
     Active Substance: LABETALOL HYDROCHLORIDE
     Dosage: UNK
  15. BEXTRA [Suspect]
     Active Substance: VALDECOXIB
     Dosage: UNK
  16. KEFLEX [Suspect]
     Active Substance: CEPHALEXIN
     Dosage: UNK
  17. INDERAL [Suspect]
     Active Substance: PROPRANOLOL HYDROCHLORIDE
     Dosage: UNK
  18. HYGROTON [Suspect]
     Active Substance: CHLORTHALIDONE
     Dosage: UNK
  19. LIPITOR [Suspect]
     Active Substance: ATORVASTATIN CALCIUM
     Dosage: UNK
  20. PYRIDIUM [Suspect]
     Active Substance: PHENAZOPYRIDINE
     Dosage: UNK

REACTIONS (1)
  - Drug hypersensitivity [Unknown]
